FAERS Safety Report 6196108-3 (Version None)
Quarter: 2009Q2

REPORT INFORMATION
  Report Type: 
  Country: None (occurrence: None)
  Receive Date: 20090520
  Receipt Date: 20090513
  Transmission Date: 20091009
  Serious: Yes (Hospitalization)
  Sender: FDA-Public Use
  Company Number: US-KINGPHARMUSA00001-K200900582

PATIENT
  Age: 78 Year
  Sex: Male

DRUGS (3)
  1. ALTACE [Suspect]
     Dosage: 7.5 MG, QD
     Route: 048
     Dates: start: 20081001
  2. ALTACE [Suspect]
     Dosage: 2.5 MG, BID
     Route: 048
     Dates: start: 20080701, end: 20081001
  3. ALTACE [Suspect]
     Dosage: 10 MG, QD
     Route: 048

REACTIONS (1)
  - CHOLANGITIS [None]
